FAERS Safety Report 6488043-8 (Version None)
Quarter: 2009Q4

REPORT INFORMATION
  Report Type: 
  Country: None (occurrence: None)
  Receive Date: 20091123
  Receipt Date: 20091019
  Transmission Date: 20100525
  Serious: No
  Sender: FDA-Public Use
  Company Number: 8053371

PATIENT
  Age: 43 Year
  Sex: Female

DRUGS (1)
  1. CIMZIA [Suspect]
     Dosage: SC
     Route: 058

REACTIONS (3)
  - FLUSHING [None]
  - PRURITUS [None]
  - RASH [None]
